FAERS Safety Report 23963719 (Version 1)
Quarter: 2024Q2

REPORT INFORMATION
  Report Type: Spontaneous
  Country: CN (occurrence: CN)
  Receive Date: 20240611
  Receipt Date: 20240611
  Transmission Date: 20240716
  Serious: Yes (Other)
  Sender: FDA-Public Use
  Company Number: CN-BAUSCHBL-2024BNL028330

PATIENT
  Sex: Female

DRUGS (5)
  1. BROMFENAC SODIUM [Suspect]
     Active Substance: BROMFENAC SODIUM
     Indication: Infection prophylaxis
     Route: 047
  2. BROMFENAC SODIUM [Suspect]
     Active Substance: BROMFENAC SODIUM
     Route: 065
  3. TOBRAMYCIN [Suspect]
     Active Substance: TOBRAMYCIN\TOBRAMYCIN SULFATE
     Indication: Product used for unknown indication
     Route: 047
  4. DEXAMETHASONE SODIUM METASULFOBENZOATE [Suspect]
     Active Substance: DEXAMETHASONE SODIUM METASULFOBENZOATE
     Indication: Infection prophylaxis
     Route: 047
  5. DEXAMETHASONE SODIUM METASULFOBENZOATE [Suspect]
     Active Substance: DEXAMETHASONE SODIUM METASULFOBENZOATE
     Route: 065

REACTIONS (1)
  - Toxic epidermal necrolysis [Recovered/Resolved]
